FAERS Safety Report 14495902 (Version 2)
Quarter: 2022Q3

REPORT INFORMATION
  Report Type: Spontaneous
  Country: ES (occurrence: ES)
  Receive Date: 20180207
  Receipt Date: 20220920
  Transmission Date: 20221027
  Serious: Yes (Death, Hospitalization, Other)
  Sender: FDA-Public Use
  Company Number: ES-SUN PHARMACEUTICAL INDUSTRIES LTD-2018RR-162563

PATIENT
  Age: 92 Year
  Sex: Female

DRUGS (12)
  1. RAMIPRIL [Suspect]
     Active Substance: RAMIPRIL
     Indication: Product used for unknown indication
     Dosage: 17.5 MILLIGRAM IN TOTAL
     Route: 048
     Dates: start: 20170611, end: 20170611
  2. RAMIPRIL [Suspect]
     Active Substance: RAMIPRIL
     Dosage: 18 MILLIGRAM IN TOTAL
     Route: 048
     Dates: start: 20170601, end: 20170611
  3. OLANZAPINE [Suspect]
     Active Substance: OLANZAPINE
     Indication: Product used for unknown indication
     Dosage: 17.5 MG, UNK
     Route: 048
     Dates: start: 20170611, end: 20170611
  4. OLANZAPINE [Suspect]
     Active Substance: OLANZAPINE
     Dosage: 18 MILLIGRAM, TOTAL
     Route: 048
     Dates: start: 20170611, end: 20170611
  5. PREGABALIN [Suspect]
     Active Substance: PREGABALIN
     Indication: Product used for unknown indication
     Dosage: 1050 MILLIGRAM IN TOTAL
     Route: 048
     Dates: start: 20170611, end: 20170611
  6. ACETAMINOPHEN [Suspect]
     Active Substance: ACETAMINOPHEN
     Indication: Product used for unknown indication
     Dosage: 21 GRAM IN TOTAL
     Route: 048
     Dates: start: 20170611, end: 20170611
  7. OMEPRAZOLE [Suspect]
     Active Substance: OMEPRAZOLE
     Indication: Product used for unknown indication
     Dosage: 140 MILLIGRAM IN TOTAL
     Route: 048
     Dates: start: 20170611, end: 20170611
  8. SIMVASTATIN [Suspect]
     Active Substance: SIMVASTATIN
     Indication: Product used for unknown indication
     Dosage: 140 MILLIGRAM IN TOTAL
     Route: 048
     Dates: start: 20170611, end: 20170611
  9. CITALOPRAM [Suspect]
     Active Substance: CITALOPRAM HYDROBROMIDE
     Indication: Product used for unknown indication
     Dosage: 140 MILLIGRAM IN TOTAL
     Route: 048
     Dates: start: 20170611, end: 20170611
  10. ALPRAZOLAM [Suspect]
     Active Substance: ALPRAZOLAM
     Indication: Product used for unknown indication
     Dosage: 7 MILLIGRAM IN TOTAL
     Route: 048
     Dates: start: 20170611, end: 20170611
  11. ZOLPIDEM [Suspect]
     Active Substance: ZOLPIDEM TARTRATE
     Indication: Product used for unknown indication
     Dosage: 70 MILLIGRAM IN TOTAL
     Route: 048
     Dates: start: 20170611, end: 20170611
  12. METFORMIN HYDROCHLORIDE [Suspect]
     Active Substance: METFORMIN HYDROCHLORIDE
     Indication: Product used for unknown indication
     Dosage: 18 G, UNK
     Route: 048
     Dates: start: 20170611, end: 20170611

REACTIONS (2)
  - Suicide attempt [Fatal]
  - Intentional overdose [Fatal]

NARRATIVE: CASE EVENT DATE: 20170611
